FAERS Safety Report 11969469 (Version 1)
Quarter: 2016Q1

REPORT INFORMATION
  Report Type: Spontaneous
  Country: CH (occurrence: CH)
  Receive Date: 20160128
  Receipt Date: 20160128
  Transmission Date: 20160526
  Serious: Yes (Hospitalization)
  Sender: FDA-Public Use
  Company Number: CH-ASTRAZENECA-2016SE06515

PATIENT
  Age: 851 Month
  Sex: Male
  Weight: 77.4 kg

DRUGS (9)
  1. ASPIRIN CARDIO [Concomitant]
     Active Substance: ASPIRIN
     Route: 048
  2. TARKA [Concomitant]
     Active Substance: TRANDOLAPRIL\VERAPAMIL HYDROCHLORIDE
     Route: 048
  3. ENTUMIN [Suspect]
     Active Substance: CLOTHIAPINE
     Route: 048
     Dates: end: 201512
  4. SEROQUEL XR [Suspect]
     Active Substance: QUETIAPINE FUMARATE
     Route: 048
     Dates: end: 201512
  5. SEROQUEL XR [Suspect]
     Active Substance: QUETIAPINE FUMARATE
     Route: 048
     Dates: end: 201512
  6. CLOTIAPINE [Concomitant]
     Active Substance: CLOTHIAPINE
     Route: 065
  7. INEGY [Concomitant]
     Active Substance: EZETIMIBE\SIMVASTATIN
     Route: 048
  8. CLOMETHIAZOLE [Concomitant]
     Active Substance: CLOMETHIAZOLE
     Route: 065
  9. DISTRANEURIN KAPSELN [Suspect]
     Active Substance: CLOMETHIAZOLE
     Route: 048
     Dates: end: 201512

REACTIONS (6)
  - Muscle rigidity [Recovered/Resolved]
  - Bradykinesia [Recovered/Resolved]
  - Altered state of consciousness [Recovered/Resolved]
  - Extrapyramidal disorder [Recovered/Resolved]
  - Masked facies [Recovered/Resolved]
  - Tremor [Recovered/Resolved]

NARRATIVE: CASE EVENT DATE: 201512
